FAERS Safety Report 22057582 (Version 3)
Quarter: 2023Q1

REPORT INFORMATION
  Report Type: Spontaneous
  Country: GR (occurrence: GR)
  Receive Date: 20230303
  Receipt Date: 20230330
  Transmission Date: 20230417
  Serious: Yes (Death, Life-Threatening, Hospitalization)
  Sender: FDA-Public Use
  Company Number: GR-TEVA-2023-GR-2858606

PATIENT
  Age: 47 Year
  Sex: Male
  Weight: 65 kg

DRUGS (3)
  1. RITUXIMAB [Suspect]
     Active Substance: RITUXIMAB
     Indication: Follicular lymphoma
     Route: 065
  2. LENALIDOMIDE [Suspect]
     Active Substance: LENALIDOMIDE
     Indication: Follicular lymphoma
     Dosage: DATE OF LAST ADMINISTRATION: 28/JAN/2023
     Route: 048
     Dates: start: 20230111
  3. EPCORITAMAB [Suspect]
     Active Substance: EPCORITAMAB
     Indication: Follicular lymphoma
     Route: 065

REACTIONS (11)
  - Pyrexia [Recovered/Resolved]
  - Neutropenia [Not Recovered/Not Resolved]
  - Septic shock [Fatal]
  - Sepsis [Unknown]
  - Anaemia [Not Recovered/Not Resolved]
  - Pneumonia [Not Recovered/Not Resolved]
  - Thrombocytopenia [Not Recovered/Not Resolved]
  - Bronchopulmonary aspergillosis [Not Recovered/Not Resolved]
  - Bacteraemia [Not Recovered/Not Resolved]
  - Hypoxia [Not Recovered/Not Resolved]
  - Endotracheal intubation [Fatal]

NARRATIVE: CASE EVENT DATE: 20230116
